FAERS Safety Report 9629444 (Version 2)
Quarter: 2013Q4

REPORT INFORMATION
  Report Type: Report from Study
  Country: US (occurrence: US)
  Receive Date: 20131017
  Receipt Date: 20131017
  Transmission Date: 20140711
  Serious: Yes (Hospitalization)
  Sender: FDA-Public Use
  Company Number: US-TAKEDA-TPA2013A02046

PATIENT
  Age: 55 Year
  Sex: Male
  Weight: 125.6 kg

DRUGS (15)
  1. BLINDED ALLOPURINOL [Suspect]
     Indication: HYPERURICAEMIA
     Route: 048
     Dates: start: 20110314, end: 20121026
  2. BLINDED FEBUXOSTAT [Suspect]
     Indication: HYPERURICAEMIA
     Route: 048
     Dates: start: 20110314, end: 20121026
  3. BLINDED ALLOPURINOL [Suspect]
     Route: 048
     Dates: start: 20121101
  4. BLINDED FEBUXOSTAT [Suspect]
     Route: 048
     Dates: start: 20121101
  5. FUROSEMIDE [Concomitant]
     Indication: OEDEMA PERIPHERAL
     Route: 048
     Dates: start: 20110809, end: 20121025
  6. FUROSEMIDE [Concomitant]
     Indication: OEDEMA PERIPHERAL
  7. ISOPHANE INSULIN SUSPENSION [Concomitant]
     Indication: DIABETES MELLITUS
     Route: 058
     Dates: start: 20120107
  8. LEVOTHYROXINE SODIUM [Concomitant]
     Indication: HYPOTHYROIDISM
     Route: 048
     Dates: start: 1999
  9. METOPROLOL [Concomitant]
     Indication: CARDIAC FAILURE CONGESTIVE
     Route: 048
     Dates: start: 2002
  10. LISINOPRIL [Concomitant]
     Indication: HYPERTENSION
     Route: 048
     Dates: start: 2000, end: 20121029
  11. ACETOMINOPHEN [Concomitant]
     Indication: ARTHRALGIA
     Route: 048
     Dates: start: 1975
  12. ASPIRIN [Concomitant]
     Indication: CARDIOVASCULAR EVENT PROPHYLAXIS
     Route: 048
     Dates: start: 1999
  13. VITAMIN D [Concomitant]
     Indication: VITAMIN D DEFICIENCY
     Route: 048
     Dates: start: 20110630
  14. FISH OIL [Concomitant]
     Indication: MEDICAL DIET
     Route: 048
     Dates: start: 20120501
  15. XYLOCAINE 1% [Concomitant]
     Indication: PYOGENIC GRANULOMA
     Route: 058
     Dates: start: 20121009, end: 20121010

REACTIONS (1)
  - Cellulitis [Recovered/Resolved]
